FAERS Safety Report 13823012 (Version 3)
Quarter: 2017Q3

REPORT INFORMATION
  Report Type: Spontaneous
  Country: US (occurrence: US)
  Receive Date: 20170801
  Receipt Date: 20170905
  Transmission Date: 20171127
  Serious: Yes (Other)
  Sender: FDA-Public Use
  Company Number: US-JAZZ-2017-US-009516

PATIENT
  Sex: Male

DRUGS (30)
  1. SENNA                              /00142201/ [Concomitant]
     Active Substance: SENNA LEAF
  2. KETOCONAZOLE. [Concomitant]
     Active Substance: KETOCONAZOLE
  3. SERTRALINE HCL [Concomitant]
     Active Substance: SERTRALINE HYDROCHLORIDE
  4. BUPROPION HCL [Concomitant]
     Active Substance: BUPROPION HYDROCHLORIDE
  5. CYCLOBENZAPRINE. [Concomitant]
     Active Substance: CYCLOBENZAPRINE
  6. DILTIAZEM. [Concomitant]
     Active Substance: DILTIAZEM
     Indication: PRODUCT USED FOR UNKNOWN INDICATION
  7. FLOVENT HFA [Concomitant]
     Active Substance: FLUTICASONE PROPIONATE
  8. GLUCOSAMINE CHONDROITIN            /01430901/ [Concomitant]
  9. ASMANEX [Concomitant]
     Active Substance: MOMETASONE FUROATE
  10. XYREM [Suspect]
     Active Substance: SODIUM OXYBATE
     Indication: CATAPLEXY
  11. HYDROCODONE BITARTRATE AND ACETAMINOPHEN [Concomitant]
     Active Substance: ACETAMINOPHEN\HYDROCODONE BITARTRATE
  12. XANAX [Concomitant]
     Active Substance: ALPRAZOLAM
     Indication: PRODUCT USED FOR UNKNOWN INDICATION
  13. CAPSAICIN. [Concomitant]
     Active Substance: CAPSAICIN
  14. HYDROCORTISONE. [Concomitant]
     Active Substance: HYDROCORTISONE
  15. MODAFINIL. [Concomitant]
     Active Substance: MODAFINIL
  16. SILDENAFIL. [Concomitant]
     Active Substance: SILDENAFIL
  17. PSYLLIUM HUSK                      /00029101/ [Concomitant]
  18. FLEXERIL [Concomitant]
     Active Substance: CYCLOBENZAPRINE HYDROCHLORIDE
     Indication: PRODUCT USED FOR UNKNOWN INDICATION
  19. XYREM [Suspect]
     Active Substance: SODIUM OXYBATE
     Indication: NARCOLEPSY
     Dosage: 4.5G, BID
     Route: 048
     Dates: start: 200706
  20. ALPRAZOLAM. [Concomitant]
     Active Substance: ALPRAZOLAM
  21. VALIUM [Concomitant]
     Active Substance: DIAZEPAM
  22. LYRICA [Concomitant]
     Active Substance: PREGABALIN
     Indication: PRODUCT USED FOR UNKNOWN INDICATION
  23. LISINOPRIL. [Concomitant]
     Active Substance: LISINOPRIL
  24. SIMVASTATIN. [Concomitant]
     Active Substance: SIMVASTATIN
  25. WELLBUTRIN [Concomitant]
     Active Substance: BUPROPION HYDROCHLORIDE
     Indication: PRODUCT USED FOR UNKNOWN INDICATION
  26. HYDROCHLOROTHIAZIDE. [Concomitant]
     Active Substance: HYDROCHLOROTHIAZIDE
     Indication: PRODUCT USED FOR UNKNOWN INDICATION
  27. TRAZODONE [Concomitant]
     Active Substance: TRAZODONE HYDROCHLORIDE
     Indication: PRODUCT USED FOR UNKNOWN INDICATION
  28. ASPIR 81 [Concomitant]
  29. CELEXA [Concomitant]
     Active Substance: CITALOPRAM HYDROBROMIDE
  30. DURAGESIC [Concomitant]
     Active Substance: FENTANYL

REACTIONS (4)
  - Cataract [Unknown]
  - Eye disorder [Not Recovered/Not Resolved]
  - Intraocular pressure increased [Not Recovered/Not Resolved]
  - Pain [Not Recovered/Not Resolved]

NARRATIVE: CASE EVENT DATE: 2015
